FAERS Safety Report 8045978-2 (Version None)
Quarter: 2012Q1

REPORT INFORMATION
  Report Type: 
  Country: None (occurrence: None)
  Receive Date: 20120113
  Receipt Date: 20120110
  Transmission Date: 20120608
  Serious: No
  Sender: FDA-Public Use
  Company Number: US-PFIZER INC-2012008439

PATIENT
  Sex: Male
  Weight: 109 kg

DRUGS (8)
  1. CARVEDILOL [Suspect]
     Indication: CARDIOMYOPATHY
  2. PRADAXA [Suspect]
     Indication: ATRIAL FIBRILLATION
     Dosage: 150 MG, 2X/DAY
     Dates: start: 20111001
  3. TIKOSYN [Suspect]
     Indication: CARDIAC DISORDER
     Dosage: 500 MG, 2X/DAY
     Dates: start: 20111106
  4. RAMIPRIL [Suspect]
     Indication: ATRIAL FIBRILLATION
     Dosage: 2.5 MG, DAILY
     Dates: start: 20111001
  5. CARVEDILOL [Suspect]
     Indication: ATRIAL FIBRILLATION
     Dosage: 12.5 MG, 2X/DAY
     Dates: start: 20111001
  6. TIKOSYN [Suspect]
     Indication: ATRIAL FIBRILLATION
  7. PRADAXA [Suspect]
     Indication: CARDIOMYOPATHY
  8. RAMIPRIL [Suspect]
     Indication: CARDIOMYOPATHY

REACTIONS (2)
  - PRURITUS GENERALISED [None]
  - URTICARIA [None]
